FAERS Safety Report 13409390 (Version 2)
Quarter: 2017Q4

REPORT INFORMATION
  Report Type: Spontaneous
  Country: US (occurrence: US)
  Receive Date: 20170406
  Receipt Date: 20171123
  Transmission Date: 20180320
  Serious: No
  Sender: FDA-Public Use
  Company Number: US-JNJFOC-20170205432

PATIENT
  Sex: Male

DRUGS (10)
  1. RISPERDAL [Suspect]
     Active Substance: RISPERIDONE
     Indication: DEPRESSION
     Dosage: IN VARYING DOSES 1 MG (TWICE A DAY) AND 2 MG.
     Route: 048
     Dates: start: 20101110, end: 20101116
  2. RISPERDAL [Suspect]
     Active Substance: RISPERIDONE
     Indication: AGGRESSION
     Route: 048
     Dates: start: 20080130
  3. RISPERDAL [Suspect]
     Active Substance: RISPERIDONE
     Indication: AGGRESSION
     Dosage: IN VARYING DOSES 1 MG (TWICE A DAY) AND 2 MG.
     Route: 048
     Dates: start: 20101110, end: 20101116
  4. RISPERDAL [Suspect]
     Active Substance: RISPERIDONE
     Indication: ATTENTION DEFICIT/HYPERACTIVITY DISORDER
     Route: 048
     Dates: start: 20080130
  5. RISPERDAL [Suspect]
     Active Substance: RISPERIDONE
     Indication: DISTURBANCE IN SOCIAL BEHAVIOUR
     Route: 048
     Dates: start: 20080130
  6. RISPERDAL [Suspect]
     Active Substance: RISPERIDONE
     Indication: ATTENTION DEFICIT/HYPERACTIVITY DISORDER
     Dosage: IN VARYING DOSES 1 MG (TWICE A DAY) AND 2 MG.
     Route: 048
     Dates: start: 20101110, end: 20101116
  7. RISPERDAL [Suspect]
     Active Substance: RISPERIDONE
     Indication: DISTURBANCE IN SOCIAL BEHAVIOUR
     Dosage: IN VARYING DOSES 1 MG (TWICE A DAY) AND 2 MG.
     Route: 048
     Dates: start: 20101110, end: 20101116
  8. RISPERDAL [Suspect]
     Active Substance: RISPERIDONE
     Indication: AFFECTIVE DISORDER
     Route: 048
     Dates: start: 20080130
  9. RISPERDAL [Suspect]
     Active Substance: RISPERIDONE
     Indication: AFFECTIVE DISORDER
     Dosage: IN VARYING DOSES 1 MG (TWICE A DAY) AND 2 MG.
     Route: 048
     Dates: start: 20101110, end: 20101116
  10. RISPERDAL [Suspect]
     Active Substance: RISPERIDONE
     Indication: DEPRESSION
     Route: 048
     Dates: start: 20080130

REACTIONS (2)
  - Emotional disorder [Unknown]
  - Gynaecomastia [Unknown]

NARRATIVE: CASE EVENT DATE: 2010
